FAERS Safety Report 10420219 (Version 1)
Quarter: 2014Q3

REPORT INFORMATION
  Report Type: Report from Study
  Country: US (occurrence: None)
  Receive Date: 20140804
  Receipt Date: 20140804
  Transmission Date: 20150326
  Serious: Yes (Other)
  Sender: FDA-Public Use
  Company Number: 2013US008873

PATIENT
  Age: 83 Year
  Sex: Male
  Weight: 79.4 kg

DRUGS (7)
  1. GLIPIZIDE (GLIPIZIDE) TABLET [Concomitant]
  2. NAPROXEN (NAPROXEN) [Concomitant]
     Active Substance: NAPROXEN
  3. IRON (IRON) TABLET [Concomitant]
  4. RANITIDINE [Concomitant]
     Active Substance: RANITIDINE\RANITIDINE HYDROCHLORIDE
  5. SIMVASTATIN (SIMVASTATIN) [Concomitant]
     Active Substance: SIMVASTATIN
  6. LOSARTAN (LOSARTAN) TABLET [Concomitant]
  7. GLASSIA [Suspect]
     Active Substance: .ALPHA.1-PROTEINASE INHIBITOR HUMAN
     Indication: ALPHA-1 ANTI-TRYPSIN DEFICIENCY
     Route: 042
     Dates: start: 201210

REACTIONS (5)
  - Prostate cancer [None]
  - Connective tissue disorder [None]
  - Bronchitis [None]
  - Asthenia [None]
  - Weight increased [None]

NARRATIVE: CASE EVENT DATE: 20131017
